FAERS Safety Report 5642297-6 (Version None)
Quarter: 2008Q1

REPORT INFORMATION
  Report Type: 
  Country: None (occurrence: None)
  Receive Date: 20080226
  Receipt Date: 20080214
  Transmission Date: 20080703
  Serious: Yes (Hospitalization, Other)
  Sender: FDA-Public Use
  Company Number: 2008AP000455

PATIENT
  Age: 65 Year
  Sex: Female

DRUGS (9)
  1. PAROXETINE HCL [Suspect]
  2. METHYLENE BLUE (METHYLTHIONINIUM CHLORIDE) [Suspect]
     Dosage: 200 MG; 1X IV, 200 MG; INJECT; IV; 1X
     Route: 042
  3. INSULIN HUMAN INJECTION, ISOPHANE (INSULIN HUMAN INJECTION, ISOPHANE) [Concomitant]
  4. METFORMIN (METFORMIN) [Concomitant]
  5. RAMIPRIL [Concomitant]
  6. ATENOLOL [Concomitant]
  7. ACETYLSALICYLIC ACID SRT [Concomitant]
  8. SIMVASTATIN [Concomitant]
  9. CARBIMAZOLE (CARBIMAZOLE) [Concomitant]

REACTIONS (3)
  - APHASIA [None]
  - DRUG INTERACTION [None]
  - SEROTONIN SYNDROME [None]
